FAERS Safety Report 14247905 (Version 1)
Quarter: 2017Q4

REPORT INFORMATION
  Report Type: Spontaneous
  Country: ES (occurrence: ES)
  Receive Date: 20171204
  Receipt Date: 20171204
  Transmission Date: 20180321
  Serious: Yes (Other)
  Sender: FDA-Public Use
  Company Number: ES-GLAXOSMITHKLINE-ES2017GSK125612

PATIENT
  Age: 30 Year
  Sex: Female

DRUGS (1)
  1. NUCALA [Suspect]
     Active Substance: MEPOLIZUMAB
     Indication: ASTHMA
     Dosage: UNK
     Dates: start: 20170606, end: 20170807

REACTIONS (11)
  - Paraesthesia [Unknown]
  - Malaise [Unknown]
  - Vision blurred [Unknown]
  - Pyrexia [Unknown]
  - Attention deficit/hyperactivity disorder [Unknown]
  - Optic neuropathy [Unknown]
  - Headache [Unknown]
  - Head discomfort [Unknown]
  - Hypoaesthesia [Unknown]
  - Asthenia [Unknown]
  - Fatigue [Unknown]
